FAERS Safety Report 5715967-9 (Version None)
Quarter: 2008Q2

REPORT INFORMATION
  Report Type: 
  Country: None (occurrence: None)
  Receive Date: 20080424
  Receipt Date: 20080416
  Transmission Date: 20081010
  Serious: Yes (Hospitalization)
  Sender: FDA-Public Use
  Company Number: AU-ASTRAZENECA-2008AC00975

PATIENT
  Age: 47 Year
  Sex: Male

DRUGS (10)
  1. ROPIVACAINE [Suspect]
     Indication: NERVE BLOCK
     Route: 053
  2. MIDAZOLAM HCL [Concomitant]
     Route: 042
  3. FENTANYL CITRATE [Concomitant]
     Route: 042
  4. FENTANYL CITRATE [Concomitant]
     Dosage: POSTOPERATIVE PATIENT CONTROLLED ANALGESIA. 1000UG IN 50 ML SALINE WITH BOLUS 25 UG EVERY 3 MINS.
     Route: 042
  5. PROPOFOL [Concomitant]
     Indication: INDUCTION OF ANAESTHESIA
  6. OXYGEN/AIR [Concomitant]
  7. SEVOFLURANE [Concomitant]
  8. DEXAMETHASONE TAB [Concomitant]
     Indication: PROPHYLAXIS OF NAUSEA AND VOMITING
  9. DICLOFENAC SODIUM [Concomitant]
  10. PARACETAMOL [Concomitant]
     Route: 042

REACTIONS (1)
  - WEIGHT BEARING DIFFICULTY [None]
